FAERS Safety Report 8097616-0 (Version None)
Quarter: 2012Q1

REPORT INFORMATION
  Report Type: 
  Country: None (occurrence: None)
  Receive Date: 20120128
  Receipt Date: 20110816
  Transmission Date: 20120608
  Serious: Yes (Hospitalization)
  Sender: FDA-Public Use
  Company Number: US-ABBOTT-11P-163-0836355-00

PATIENT
  Sex: Female

DRUGS (2)
  1. HUMIRA [Suspect]
     Indication: PSORIASIS
     Route: 058
     Dates: start: 20100831, end: 20110401
  2. HUMIRA [Suspect]
     Dates: end: 20110628

REACTIONS (2)
  - ANAPHYLACTIC REACTION [None]
  - PSORIASIS [None]
